FAERS Safety Report 7378385-6 (Version None)
Quarter: 2011Q1

REPORT INFORMATION
  Report Type: 
  Country: None (occurrence: None)
  Receive Date: 20110323
  Receipt Date: 20110323
  Transmission Date: 20110831
  Serious: Yes (Other)
  Sender: FDA-Public Use
  Company Number: None

PATIENT
  Sex: Male
  Weight: 58.9676 kg

DRUGS (3)
  1. RISPERIDONE [Suspect]
  2. RISPERIDONE [Suspect]
     Indication: AUTISM
     Dosage: 1.5 MG BID P.O.
     Route: 048
     Dates: start: 20100101
  3. RISPERIDONE [Suspect]
     Indication: AGGRESSION
     Dosage: 1.5 MG BID P.O.
     Route: 048
     Dates: start: 20100101

REACTIONS (3)
  - CONDITION AGGRAVATED [None]
  - AGGRESSION [None]
  - PRODUCT SUBSTITUTION ISSUE [None]
